FAERS Safety Report 6249704-9 (Version None)
Quarter: 2009Q2

REPORT INFORMATION
  Report Type: 
  Country: None (occurrence: None)
  Receive Date: 20090624
  Receipt Date: 20090612
  Transmission Date: 20091009
  Serious: Yes (Other)
  Sender: FDA-Public Use
  Company Number: PAR_03027_2009

PATIENT
  Age: 44 Year
  Sex: Male

DRUGS (2)
  1. IBUPROFENO (IBUPROFENO - IBUPROFEN) (NOT SPECIFIED) [Suspect]
     Indication: DRUG USE FOR UNKNOWN INDICATION
     Dosage: (1800 MG ORAL)
     Route: 048
     Dates: start: 20090305, end: 20090306
  2. ACTIRA (ACTIRA - MOXIFLOXACIN HYDROCHLORIDE) 400 MG (NOT SPECIFIED) [Suspect]
     Indication: SINUSITIS
     Dosage: (400 MG ORAL)
     Route: 048
     Dates: start: 20090305, end: 20090309

REACTIONS (2)
  - DRUG INTERACTION [None]
  - HEPATITIS CHOLESTATIC [None]
